FAERS Safety Report 21208898 (Version 1)
Quarter: 2022Q3

REPORT INFORMATION
  Report Type: Spontaneous
  Country: US (occurrence: None)
  Receive Date: 20220812
  Receipt Date: 20220812
  Transmission Date: 20221026
  Serious: Yes (Death)
  Sender: FDA-Public Use
  Company Number: None

PATIENT
  Age: 69 Year
  Sex: Female
  Weight: 79.6 kg

DRUGS (1)
  1. LAPINE T-LYMPHOCYTE IMMUNE GLOBULIN [Suspect]
     Active Substance: LAPINE T-LYMPHOCYTE IMMUNE GLOBULIN
     Indication: Transplant
     Dosage: FREQUENCY : ONCE;?
     Route: 042
     Dates: start: 20220711, end: 20220711

REACTIONS (2)
  - Anaphylactic reaction [None]
  - Post procedural complication [None]

NARRATIVE: CASE EVENT DATE: 20220711
